FAERS Safety Report 25088639 (Version 4)
Quarter: 2025Q2

REPORT INFORMATION
  Report Type: Report from Study
  Country: US (occurrence: US)
  Receive Date: 20250318
  Receipt Date: 20250516
  Transmission Date: 20250717
  Serious: Yes (Hospitalization)
  Sender: ROCHE
  Company Number: US-ROCHE-10000228804

PATIENT
  Age: 64 Year
  Sex: Female

DRUGS (3)
  1. ENSPRYNG [Suspect]
     Active Substance: SATRALIZUMAB-MWGE
     Indication: Neuromyelitis optica spectrum disorder
     Dosage: LOADING CLOSE SIG: DISPENSE 3 (120 MG) PREF(LLED SYRINGES INJECT 120 MG SC AT WEEKS 0, 2, AND 4 ?MAI
     Route: 058
     Dates: start: 202408
  2. ENSPRYNG [Suspect]
     Active Substance: SATRALIZUMAB-MWGE
  3. ENSPRYNG [Suspect]
     Active Substance: SATRALIZUMAB-MWGE

REACTIONS (3)
  - Pneumonia [Unknown]
  - Respiratory tract infection [Unknown]
  - Rash [Unknown]

NARRATIVE: CASE EVENT DATE: 20250303
